FAERS Safety Report 19160361 (Version 1)
Quarter: 2021Q2

REPORT INFORMATION
  Report Type: Spontaneous
  Country: US (occurrence: US)
  Receive Date: 20210420
  Receipt Date: 20210420
  Transmission Date: 20210717
  Serious: Yes (Hospitalization, Other)
  Sender: FDA-Public Use
  Company Number: US-LUNDBECK-DKLU3031685

PATIENT
  Age: 36 Year
  Sex: Male

DRUGS (1)
  1. ONFI [Suspect]
     Active Substance: CLOBAZAM
     Indication: GENERALISED TONIC-CLONIC SEIZURE
     Route: 048
     Dates: start: 2014

REACTIONS (3)
  - Seizure [Unknown]
  - Intestinal resection [Unknown]
  - Surgical vascular shunt [Unknown]

NARRATIVE: CASE EVENT DATE: 201703
